FAERS Safety Report 22271576 (Version 10)
Quarter: 2024Q2

REPORT INFORMATION
  Report Type: Spontaneous
  Country: BE (occurrence: BE)
  Receive Date: 20230502
  Receipt Date: 20240618
  Transmission Date: 20240716
  Serious: Yes (Hospitalization, Other)
  Sender: FDA-Public Use
  Company Number: BE-Accord-355848

PATIENT
  Age: 43 Year
  Sex: Female
  Weight: 65 kg

DRUGS (40)
  1. GEMCITABINE [Suspect]
     Active Substance: GEMCITABINE
     Indication: Diffuse large B-cell lymphoma
     Dosage: 1Q2W, INTRAVENOUS
     Dates: start: 20221118, end: 20230113
  2. OXALIPLATIN [Suspect]
     Active Substance: OXALIPLATIN
     Indication: Diffuse large B-cell lymphoma
     Dosage: 1Q2W, INTRAVENOUS
     Dates: start: 20221118, end: 20230113
  3. EPCORITAMAB [Concomitant]
     Active Substance: EPCORITAMAB
     Indication: Diffuse large B-cell lymphoma stage IV
     Dosage: PRIMING DOSE: 0.16MILLIGRAM, SINGLE
     Route: 058
     Dates: start: 20221118, end: 20221118
  4. LEVOCETIRIZINE [Concomitant]
     Active Substance: LEVOCETIRIZINE
     Indication: Premedication
     Dosage: 5 MG
     Route: 048
     Dates: start: 20230120, end: 20230411
  5. ACETAMINOPHEN [Concomitant]
     Active Substance: ACETAMINOPHEN
     Indication: Premedication
     Dosage: 1000 MG
     Route: 048
     Dates: start: 20230120, end: 20230411
  6. METHYLPREDNISOLONE [Concomitant]
     Active Substance: METHYLPREDNISOLONE
     Indication: Prophylaxis
     Dosage: 80 MG
     Route: 048
     Dates: start: 20221230, end: 20230327
  7. FILGRASTIM [Concomitant]
     Active Substance: FILGRASTIM
     Dates: start: 20221121
  8. ACYCLOVIR [Concomitant]
     Active Substance: ACYCLOVIR
     Dates: start: 202204
  9. ALDACTONE [Concomitant]
     Active Substance: SPIRONOLACTONE
     Dates: start: 202204, end: 20230203
  10. ALIZAPRIDE [Concomitant]
     Active Substance: ALIZAPRIDE
     Dates: start: 20221230, end: 20230303
  11. ARANESP [Concomitant]
     Active Substance: DARBEPOETIN ALFA
     Dates: start: 20230217, end: 20230303
  12. Befact [Concomitant]
     Dates: start: 202210
  13. CIPROFLOXACIN [Concomitant]
     Active Substance: CIPROFLOXACIN
     Dates: start: 20230222, end: 20230227
  14. SULFAMETHOXAZOLE\TRIMETHOPRIM [Concomitant]
     Active Substance: SULFAMETHOXAZOLE\TRIMETHOPRIM
     Dates: start: 20221024
  15. FOLIC ACID [Concomitant]
     Active Substance: FOLIC ACID
     Dates: start: 202207
  16. LYRICA [Concomitant]
     Active Substance: PREGABALIN
     Dates: start: 202204
  17. PALONOSETRON [Concomitant]
     Active Substance: PALONOSETRON
     Dates: start: 20221230, end: 20230303
  18. Pantomed [Concomitant]
     Dates: start: 202204
  19. VALIUM [Concomitant]
     Active Substance: DIAZEPAM
     Dates: start: 202204
  20. XANAX [Concomitant]
     Active Substance: ALPRAZOLAM
     Dates: start: 202204
  21. ENOXAPARIN SODIUM [Concomitant]
     Active Substance: ENOXAPARIN SODIUM
     Dates: start: 20230128
  22. LIPEGFILGRASTIM [Concomitant]
     Active Substance: LIPEGFILGRASTIM
     Dates: start: 20230203, end: 20230203
  23. DIFLUCAN [Concomitant]
     Active Substance: FLUCONAZOLE
     Dates: start: 20230405
  24. POTASSIUM CHLORIDE [Concomitant]
     Active Substance: POTASSIUM CHLORIDE
     Dates: start: 20230319, end: 20230322
  25. KCL [Concomitant]
     Active Substance: POTASSIUM CHLORIDE
     Dates: start: 20230311, end: 20230316
  26. MEDROL [Concomitant]
     Active Substance: METHYLPREDNISOLONE
     Dates: start: 20230404
  27. POLARAMINE [Concomitant]
     Active Substance: DEXCHLORPHENIRAMINE MALEATE
     Dates: start: 20230324, end: 20230324
  28. HUMAN IMMUNOGLOBULIN G [Concomitant]
     Active Substance: HUMAN IMMUNOGLOBULIN G
     Dates: start: 20230324, end: 20230324
  29. SOLU-MEDROL [Concomitant]
     Active Substance: METHYLPREDNISOLONE SODIUM SUCCINATE
     Dates: start: 20230328, end: 20230331
  30. CEFUROXIME [Concomitant]
     Active Substance: CEFUROXIME
     Dates: start: 20230308, end: 20230310
  31. AMOXICILLIN\CLAVULANATE POTASSIUM [Concomitant]
     Active Substance: AMOXICILLIN\CLAVULANATE POTASSIUM
     Dates: start: 20230310, end: 20230317
  32. FOSFOMYCIN TROMETHAMINE [Concomitant]
     Active Substance: FOSFOMYCIN TROMETHAMINE
     Dates: start: 20230216, end: 20230216
  33. PROPOLIS WAX [Concomitant]
     Active Substance: PROPOLIS WAX
     Dates: start: 20230308
  34. EPCORITAMAB [Concomitant]
     Active Substance: EPCORITAMAB
     Indication: Diffuse large B-cell lymphoma stage IV
     Dosage: INTERMEDIATE DOSE: 0.8MILLIGRAM, SINGLE
     Route: 058
     Dates: start: 20221125, end: 20221125
  35. EPCORITAMAB [Concomitant]
     Active Substance: EPCORITAMAB
     Indication: Diffuse large B-cell lymphoma stage IV
     Dosage: FULL DOSE: 48 MILLIGRAM, WEEKLY
     Route: 058
     Dates: start: 20221202, end: 20230120
  36. EPCORITAMAB [Concomitant]
     Active Substance: EPCORITAMAB
     Indication: Diffuse large B-cell lymphoma stage IV
     Dosage: FULL DOSE: 48MILLIGRAM, 1Q2W
     Route: 058
     Dates: start: 20230217, end: 20230303
  37. GEMCITABINE [Suspect]
     Active Substance: GEMCITABINE
     Indication: Diffuse large B-cell lymphoma
     Dosage: 1Q2W, INTRAVENOUS
     Dates: start: 20230201, end: 20230303
  38. OXALIPLATIN [Suspect]
     Active Substance: OXALIPLATIN
     Indication: Diffuse large B-cell lymphoma
     Dosage: 1Q2W, INTRAVENOUS
     Dates: start: 20230201, end: 20230303
  39. EPCORITAMAB [Concomitant]
     Active Substance: EPCORITAMAB
     Indication: Diffuse large B-cell lymphoma stage IV
     Dosage: FULL DOSE: 48MILLIGRAM, 1Q2W
     Route: 058
     Dates: start: 20230201, end: 20230210
  40. EPCORITAMAB [Concomitant]
     Active Substance: EPCORITAMAB
     Indication: Diffuse large B-cell lymphoma stage IV
     Dosage: FULL DOSE: 48MILLIGRAM, 1Q2W
     Route: 058
     Dates: start: 20230327, end: 20230411

REACTIONS (3)
  - Cardiac failure [Recovering/Resolving]
  - Pulmonary arterial hypertension [Recovering/Resolving]
  - Dyspnoea [Not Recovered/Not Resolved]

NARRATIVE: CASE EVENT DATE: 20230120
